FAERS Safety Report 7204853-3 (Version None)
Quarter: 2010Q4

REPORT INFORMATION
  Report Type: 
  Country: None (occurrence: None)
  Receive Date: 20101230
  Receipt Date: 20101207
  Transmission Date: 20110411
  Serious: No
  Sender: FDA-Public Use
  Company Number: US-PFIZER INC-US-WYE-H17994310

PATIENT
  Sex: Female
  Weight: 61.2 kg

DRUGS (5)
  1. PREMPRO [Suspect]
     Indication: HORMONE REPLACEMENT THERAPY
     Dosage: 0.45MG/1.5MG DAILY
     Route: 048
     Dates: start: 20040901, end: 20101001
  2. ZOLOFT [Concomitant]
     Indication: DEPRESSION
     Dosage: 100 MG, 1X/DAY
     Route: 048
  3. TETRACYCLINE HYDROCHLORIDE [Concomitant]
     Indication: ROSACEA
     Dosage: 500 MG, 1X/DAY
     Route: 048
  4. POLYETHYLENE GLYCOL [Concomitant]
     Indication: IRRITABLE BOWEL SYNDROME
     Dosage: 1PK, DAILY
     Route: 048
  5. CALCIUM WITH VITAMIN D [Concomitant]
     Indication: SUPPLEMENTATION THERAPY
     Dosage: 600/200 PER DAY
     Route: 048

REACTIONS (2)
  - ALOPECIA [None]
  - ANXIETY [None]
